FAERS Safety Report 16921826 (Version 3)
Quarter: 2019Q4

REPORT INFORMATION
  Report Type: Report from Study
  Country: US (occurrence: US)
  Receive Date: 20191015
  Receipt Date: 20191128
  Transmission Date: 20200122
  Serious: Yes (Hospitalization)
  Sender: FDA-Public Use
  Company Number: PHHO2019US009791

PATIENT
  Age: 12 Year
  Sex: Female

DRUGS (7)
  1. INC424A [Suspect]
     Active Substance: RUXOLITINIB
     Indication: ACUTE LYMPHOCYTIC LEUKAEMIA
     Dosage: UNK
     Route: 048
     Dates: start: 20190418
  2. DEXAMETHASONE. [Suspect]
     Active Substance: DEXAMETHASONE
     Indication: PRODUCT USED FOR UNKNOWN INDICATION
     Dosage: 6.5 MILLIGRAM, BID DAYS 1-7, 15-22 DI
     Route: 048
     Dates: start: 20190917
  3. DOXORUBICIN [Suspect]
     Active Substance: DOXORUBICIN
     Indication: ACUTE LYMPHOCYTIC LEUKAEMIA
     Dosage: 32.5 MILLIGRAM DAY 1, 8, 15 DI
     Route: 042
     Dates: start: 20190917
  4. VINCRISTINE [Concomitant]
     Active Substance: VINCRISTINE
     Indication: ACUTE LYMPHOCYTIC LEUKAEMIA
     Dosage: 1.95 MG, DAY 1, 8, 15
     Route: 042
     Dates: start: 20190917
  5. INC424A [Suspect]
     Active Substance: RUXOLITINIB
     Dosage: 65 MG, DAYS 1-14 DI
     Route: 048
     Dates: start: 20190917
  6. PEGASPARGASE [Suspect]
     Active Substance: PEGASPARGASE
     Indication: ACUTE LYMPHOCYTIC LEUKAEMIA
     Dosage: 3247.5 INTERNATIONAL UNIT DAY 4 DI
     Route: 042
     Dates: start: 20190920
  7. METHOTREXATE. [Concomitant]
     Active Substance: METHOTREXATE
     Indication: ACUTE LYMPHOCYTIC LEUKAEMIA
     Dosage: 15 MG, DAY 1 DI
     Route: 037
     Dates: start: 20190917

REACTIONS (3)
  - Pharyngitis [Recovered/Resolved]
  - Hyperglycaemia [Recovered/Resolved]
  - Mucosal inflammation [Recovered/Resolved]

NARRATIVE: CASE EVENT DATE: 20190928
